FAERS Safety Report 4424109-1 (Version None)
Quarter: 2004Q3

REPORT INFORMATION
  Report Type: 
  Country: None (occurrence: None)
  Receive Date: 20040812
  Receipt Date: 20040803
  Transmission Date: 20050211
  Serious: Yes (Life-Threatening, Hospitalization)
  Sender: FDA-Public Use
  Company Number: JP-JNJFOC-20040800654

PATIENT
  Sex: Male

DRUGS (1)
  1. ITRIZOLE [Suspect]
     Indication: DRUG USE FOR UNKNOWN INDICATION
     Route: 049
     Dates: start: 20020909, end: 20040626

REACTIONS (2)
  - GASTRIC ULCER [None]
  - STRESS ULCER [None]
